FAERS Safety Report 5968005-7 (Version None)
Quarter: 2008Q4

REPORT INFORMATION
  Report Type: 
  Country: None (occurrence: None)
  Receive Date: 20081126
  Receipt Date: 20081118
  Transmission Date: 20090506
  Serious: Yes (Hospitalization, Other)
  Sender: FDA-Public Use
  Company Number: ES-BRISTOL-MYERS SQUIBB COMPANY-14417869

PATIENT
  Age: 50 Year
  Sex: Female

DRUGS (4)
  1. CETUXIMAB [Suspect]
     Indication: COLORECTAL CANCER
     Route: 042
     Dates: start: 20080123, end: 20081010
  2. OXALIPLATIN [Suspect]
     Indication: COLORECTAL CANCER
     Route: 042
     Dates: start: 20080123, end: 20081010
  3. CAPECITABINE [Suspect]
     Indication: COLORECTAL CANCER
     Route: 042
     Dates: start: 20080123, end: 20081010
  4. RADIOTHERAPY [Suspect]
     Indication: COLORECTAL CANCER
     Dates: start: 20080123, end: 20081010

REACTIONS (1)
  - PANCREATITIS [None]
